FAERS Safety Report 22284569 (Version 2)
Quarter: 2023Q2

REPORT INFORMATION
  Report Type: Spontaneous
  Country: US (occurrence: US)
  Receive Date: 20230504
  Receipt Date: 20230519
  Transmission Date: 20230721
  Serious: Yes (Hospitalization)
  Sender: FDA-Public Use
  Company Number: US-TEVA-2023-US-2882031

PATIENT
  Sex: Male

DRUGS (15)
  1. IVERMECTIN [Suspect]
     Active Substance: IVERMECTIN
     Indication: COVID-19 prophylaxis
     Dosage: 100 MILLIGRAM DAILY; ESCALATING DAILY DOSES OF IVERMECTIN FOR THE PAST 6 MONTHS (UP TO 100 MG IN THE
     Route: 065
  2. OLANZAPINE [Suspect]
     Active Substance: OLANZAPINE
     Indication: Schizophrenia
     Route: 065
  3. HERBALS\WITHANIA SOMNIFERA ROOT [Concomitant]
     Active Substance: HERBALS\WITHANIA SOMNIFERA ROOT
     Indication: Supplementation therapy
     Route: 065
  4. Uva ursi [Concomitant]
     Indication: Supplementation therapy
     Route: 065
  5. CHI SHAO [Concomitant]
     Indication: Supplementation therapy
     Route: 065
  6. SERRAPEPTASE [Concomitant]
     Active Substance: SERRAPEPTASE
     Indication: Supplementation therapy
     Route: 065
  7. Burdock [Concomitant]
     Indication: Supplementation therapy
     Route: 065
  8. DIETARY SUPPLEMENT\HERBALS [Concomitant]
     Active Substance: DIETARY SUPPLEMENT\HERBALS
     Indication: Supplementation therapy
     Route: 065
  9. FUCUS VESICULOSUS [Concomitant]
     Active Substance: FUCUS VESICULOSUS
     Indication: Supplementation therapy
     Route: 065
  10. DANDELION [Concomitant]
     Active Substance: TARAXACUM OFFICINALE POLLEN
     Indication: Supplementation therapy
     Route: 065
  11. Neem leaf [Concomitant]
     Indication: Supplementation therapy
     Route: 065
  12. URTICA DIOICA LEAF [Concomitant]
     Active Substance: URTICA DIOICA LEAF
     Indication: Supplementation therapy
     Route: 065
  13. NIACIN [Concomitant]
     Active Substance: NIACIN
     Indication: Supplementation therapy
     Route: 065
  14. DIETARY SUPPLEMENT [Concomitant]
     Active Substance: DIETARY SUPPLEMENT
     Indication: Supplementation therapy
     Route: 065
  15. MULLEIN [Concomitant]
     Indication: Supplementation therapy
     Route: 065

REACTIONS (4)
  - Hepatic failure [Unknown]
  - Treatment noncompliance [Unknown]
  - Prescription drug used without a prescription [Unknown]
  - Off label use [Unknown]
